FAERS Safety Report 9448967 (Version 1)
Quarter: 2013Q3

REPORT INFORMATION
  Report Type: Report from Study
  Country: CA (occurrence: CA)
  Receive Date: 20130808
  Receipt Date: 20130808
  Transmission Date: 20140515
  Serious: Yes (Death, Other)
  Sender: FDA-Public Use
  Company Number: CA-ABBOTT-13P-028-1130379-00

PATIENT
  Age: 85 Year
  Sex: Male
  Weight: 106 kg

DRUGS (3)
  1. LUPRON DEPOT [Suspect]
     Indication: PRODUCT USED FOR UNKNOWN INDICATION
     Route: 030
     Dates: start: 20120523
  2. ASA [Concomitant]
     Indication: PRODUCT USED FOR UNKNOWN INDICATION
     Dates: end: 2013
  3. VITAMIN C [Concomitant]
     Indication: PRODUCT USED FOR UNKNOWN INDICATION

REACTIONS (21)
  - Hormone-refractory prostate cancer [Fatal]
  - Metastases to bone [Fatal]
  - Prostate cancer metastatic [Unknown]
  - Lymphadenopathy [Unknown]
  - Intestinal mass [Unknown]
  - Spinal compression fracture [Unknown]
  - Metastases to spine [Unknown]
  - Joint swelling [Unknown]
  - Back pain [Unknown]
  - Back pain [Unknown]
  - Mobility decreased [Unknown]
  - Pollakiuria [Unknown]
  - Pain [Unknown]
  - Constipation [Unknown]
  - Depression [Unknown]
  - Mood altered [Unknown]
  - Sleep disorder [Unknown]
  - Appetite disorder [Unknown]
  - Weight decreased [Unknown]
  - Asthenia [Unknown]
  - Discomfort [Unknown]
